FAERS Safety Report 6310155-X (Version None)
Quarter: 2009Q3

REPORT INFORMATION
  Report Type: 
  Country: None (occurrence: None)
  Receive Date: 20090814
  Receipt Date: 20090805
  Transmission Date: 20100115
  Serious: Yes (Death, Hospitalization)
  Sender: FDA-Public Use
  Company Number: CA-BRISTOL-MYERS SQUIBB COMPANY-14655682

PATIENT
  Age: 71 Year
  Sex: Female
  Weight: 56 kg

DRUGS (11)
  1. BRIVANIB ALANINATE [Suspect]
     Indication: COLORECTAL CANCER METASTATIC
     Dosage: START 15-MAY-09 AT 800 MG/DAILY,INTERRUPTED 28-MAY-2009,REC'D ONE DOSE 05-JUN-2009, DQ'D 06-JUN-09
     Route: 048
     Dates: start: 20090515, end: 20090605
  2. CETUXIMAB [Suspect]
     Indication: COLORECTAL CANCER METASTATIC
     Dosage: DID NOT RECEIVE ONE DOSE ON 29-MAY-2009
     Route: 042
     Dates: start: 20090515, end: 20090605
  3. PLACEBO [Suspect]
     Indication: COLORECTAL CANCER METASTATIC
     Dosage: TOTAL NO. OF DOSES-4.INTERRUPTED ON 06JUN09.
     Route: 048
     Dates: start: 20090515, end: 20090605
  4. METOCLOPRAMIDE [Concomitant]
     Indication: ABDOMINAL PAIN UPPER
     Dates: start: 20090507
  5. HYDROMORPHONE HCL [Concomitant]
     Indication: PAIN
     Dates: start: 20090508
  6. HYDROMORPHONE HCL [Concomitant]
     Indication: PAIN
     Dates: start: 20090512
  7. DEXAMETHASONE [Concomitant]
     Indication: ANTIINFLAMMATORY THERAPY
     Dates: start: 20090508
  8. RABEPRAZOLE SODIUM [Concomitant]
     Indication: GASTROOESOPHAGEAL REFLUX PROPHYLAXIS
     Dates: start: 20090512
  9. LORAZEPAM [Concomitant]
     Indication: SLEEP DISORDER
     Dates: start: 20090508
  10. EGOZINC-HC [Concomitant]
     Indication: HAEMORRHOIDS
     Dates: start: 20090510
  11. AMLODIPINE BESYLATE [Concomitant]
     Dates: start: 20090522

REACTIONS (4)
  - ENTEROCOLITIS INFECTIOUS [None]
  - HEPATIC FUNCTION ABNORMAL [None]
  - MALIGNANT NEOPLASM PROGRESSION [None]
  - THROMBOTIC THROMBOCYTOPENIC PURPURA [None]
